FAERS Safety Report 5870588-2 (Version None)
Quarter: 2008Q3

REPORT INFORMATION
  Report Type: 
  Country: None (occurrence: None)
  Receive Date: 20080904
  Receipt Date: 20080829
  Transmission Date: 20090109
  Serious: Yes (Other)
  Sender: FDA-Public Use
  Company Number: A0745194A

PATIENT
  Sex: Male

DRUGS (2)
  1. LOVAZA [Suspect]
     Dosage: 4CAP PER DAY
     Route: 048
  2. NO CONCURRENT MEDICATION [Concomitant]

REACTIONS (1)
  - PSYCHOTIC DISORDER [None]
